FAERS Safety Report 17103021 (Version 2)
Quarter: 2020Q1

REPORT INFORMATION
  Report Type: Spontaneous
  Country: FR (occurrence: FR)
  Receive Date: 20191203
  Receipt Date: 20200128
  Transmission Date: 20200409
  Serious: Yes (Hospitalization)
  Sender: FDA-Public Use
  Company Number: FR-SUN PHARMACEUTICAL INDUSTRIES LTD-2019RR-229498

PATIENT
  Age: 55 Year
  Sex: Female
  Weight: 75.5 kg

DRUGS (6)
  1. SERESTA [Suspect]
     Active Substance: OXAZEPAM
     Indication: TOXICITY TO VARIOUS AGENTS
     Dosage: UNK
     Route: 048
     Dates: start: 20191027, end: 20191027
  2. PARACETAMOL [Suspect]
     Active Substance: ACETAMINOPHEN
     Indication: TOXICITY TO VARIOUS AGENTS
     Dosage: 8 GRAM, UNK
     Route: 048
     Dates: start: 20191027, end: 20191027
  3. DICLOFENAC [Suspect]
     Active Substance: DICLOFENAC
     Indication: TOXICITY TO VARIOUS AGENTS
     Dosage: 3 DOSAGE FORM, UNK
     Route: 048
     Dates: start: 20191027, end: 20191027
  4. IMODIUM [Suspect]
     Active Substance: LOPERAMIDE HYDROCHLORIDE
     Indication: TOXICITY TO VARIOUS AGENTS
     Dosage: 10 DOSAGE FORM, UNK
     Route: 048
     Dates: start: 20191027, end: 20191027
  5. ZOPICLONE [Suspect]
     Active Substance: ZOPICLONE
     Indication: TOXICITY TO VARIOUS AGENTS
     Dosage: 4 DOSAGE FORM, UNK
     Route: 048
     Dates: start: 20191027, end: 20191027
  6. SMECTA [Suspect]
     Active Substance: MONTMORILLONITE
     Indication: TOXICITY TO VARIOUS AGENTS
     Dosage: UNK
     Route: 048
     Dates: start: 20191027, end: 20191027

REACTIONS (3)
  - Ataxia [Recovered/Resolved]
  - Coma [Recovered/Resolved]
  - Respiratory failure [Recovered/Resolved]

NARRATIVE: CASE EVENT DATE: 20191027
